FAERS Safety Report 8373746-0 (Version None)
Quarter: 2012Q2

REPORT INFORMATION
  Report Type: 
  Country: None (occurrence: None)
  Receive Date: 20120521
  Receipt Date: 20120515
  Transmission Date: 20120825
  Serious: Yes (Life-Threatening, Hospitalization)
  Sender: FDA-Public Use
  Company Number: FR-PFIZER INC-FR-WYE-G05799910

PATIENT
  Age: 88 Year
  Sex: Female

DRUGS (17)
  1. TIORFAN [Concomitant]
  2. METFORMIN HCL [Concomitant]
     Dosage: 700 MG, UNK
  3. OXAZEPAM [Concomitant]
     Dosage: 50 MG, UNK
  4. MOTILIUM [Concomitant]
  5. EFFEXOR XR [Suspect]
     Dosage: 75 MG, 1X/DAY
     Route: 048
     Dates: start: 20100129, end: 20100208
  6. FUNGIZONE [Concomitant]
  7. INDAPAMIDE [Concomitant]
     Dosage: [INDAPAMIDE 2MG/PERINDOPRIL ERBUMINE 0.625MG]
  8. PLAVIX [Concomitant]
     Dosage: 75 MG, UNK
  9. TEICOPLANIN [Concomitant]
     Dosage: UNK
  10. CEFEPIME [Concomitant]
     Dosage: UNK
  11. CLINDAMYCIN HCL [Suspect]
     Indication: INFECTION
     Dosage: 300 MG, 2X/DAY
     Route: 048
     Dates: start: 20100103, end: 20100208
  12. LOVENOX [Concomitant]
  13. OXYCONTIN [Concomitant]
     Dosage: 10 MG, UNK
  14. EFFEXOR XR [Suspect]
     Indication: DEPRESSION
     Dosage: 37.5 MG, 1X/DAY
     Route: 048
     Dates: start: 20100113, end: 20100128
  15. LACTEOL [Concomitant]
  16. METOPROLOL TARTRATE [Concomitant]
     Dosage: 100 MG, UNK
  17. ASPIRIN [Concomitant]
     Dosage: 75 MG, UNK

REACTIONS (2)
  - AGRANULOCYTOSIS [None]
  - BACTERAEMIA [None]
